FAERS Safety Report 5335838-X (Version None)
Quarter: 2007Q2

REPORT INFORMATION
  Report Type: 
  Country: None (occurrence: None)
  Receive Date: 20070315
  Receipt Date: 20070103
  Transmission Date: 20071010
  Serious: Yes (Hospitalization)
  Sender: FDA-Public Use
  Company Number: GXBR2007US00446

PATIENT
  Age: 62 Year
  Sex: Male

DRUGS (3)
  1. NABUMETONE [Suspect]
     Indication: BACK PAIN
     Dosage: 500 MG, BID, ORAL
     Route: 048
     Dates: start: 20061213, end: 20061216
  2. SOMA [Concomitant]
  3. ZANTAC [Concomitant]

REACTIONS (4)
  - CEREBROVASCULAR ACCIDENT [None]
  - DIZZINESS [None]
  - HYPOAESTHESIA [None]
  - MONOPLEGIA [None]
